FAERS Safety Report 8499081-8 (Version None)
Quarter: 2012Q2

REPORT INFORMATION
  Report Type: 
  Country: None (occurrence: None)
  Receive Date: 20120405
  Receipt Date: 20100310
  Transmission Date: 20120825
  Serious: Yes (Other)
  Sender: FDA-Public Use
  Company Number: PHEH2010US03021

PATIENT

DRUGS (1)
  1. RECLAST [Suspect]

REACTIONS (2)
  - TOOTH EXTRACTION [None]
  - LOOSE TOOTH [None]
